FAERS Safety Report 7564067-4 (Version None)
Quarter: 2011Q2

REPORT INFORMATION
  Report Type: 
  Country: None (occurrence: None)
  Receive Date: 20110622
  Receipt Date: 20110613
  Transmission Date: 20111010
  Serious: Yes (Hospitalization)
  Sender: FDA-Public Use
  Company Number: IT-UCBSA-034577

PATIENT
  Sex: Female

DRUGS (8)
  1. VALSARTAN  AND HYDROCHLOROTHIAZIDE [Suspect]
     Indication: HYPERTENSION
     Dosage: 160 MG/12.5 MG
     Route: 048
     Dates: start: 20080101, end: 20110302
  2. LEXOTAN [Concomitant]
  3. TICLOPIDINE HCL [Suspect]
     Indication: TRANSIENT ISCHAEMIC ATTACK
     Route: 048
     Dates: start: 20110201, end: 20110302
  4. ENALAPRIL MALEATE [Suspect]
     Indication: HYPERTENSION
     Route: 048
     Dates: start: 20110201
  5. METOPROLOL TARTRATE [Concomitant]
  6. PANTOPRAZOLE [Concomitant]
  7. SIMVASTATIN [Suspect]
     Indication: DYSLIPIDAEMIA
     Route: 048
     Dates: start: 20110201, end: 20110302
  8. MONOKET [Suspect]
     Indication: HYPERTENSION
     Route: 048
     Dates: start: 20080101

REACTIONS (2)
  - DIARRHOEA [None]
  - HYPOKALAEMIA [None]
